FAERS Safety Report 24788491 (Version 1)
Quarter: 2024Q4

REPORT INFORMATION
  Report Type: Spontaneous
  Country: US (occurrence: US)
  Receive Date: 20241230
  Receipt Date: 20241230
  Transmission Date: 20250114
  Serious: No
  Sender: ROCHE
  Company Number: US-ROCHE-10000164229

PATIENT
  Sex: Female
  Weight: 58.97 kg

DRUGS (2)
  1. XOLAIR [Suspect]
     Active Substance: OMALIZUMAB
     Indication: Urticaria
     Route: 065
     Dates: start: 20240730
  2. XOLAIR [Suspect]
     Active Substance: OMALIZUMAB
     Indication: Urticaria

REACTIONS (5)
  - Accidental underdose [Unknown]
  - Accidental exposure to product [Unknown]
  - Device defective [Unknown]
  - Device issue [Unknown]
  - No adverse event [Unknown]

NARRATIVE: CASE EVENT DATE: 20241218
